FAERS Safety Report 8242415-X (Version None)
Quarter: 2012Q1

REPORT INFORMATION
  Report Type: 
  Country: None (occurrence: None)
  Receive Date: 20120329
  Receipt Date: 20120319
  Transmission Date: 20120608
  Serious: Yes (Hospitalization)
  Sender: FDA-Public Use
  Company Number: CA-JNJFOC-20120309088

PATIENT
  Sex: Female
  Weight: 52 kg

DRUGS (4)
  1. IMURAN [Concomitant]
     Route: 065
  2. PAXIL [Concomitant]
     Route: 065
  3. REMICADE [Suspect]
     Indication: CROHN'S DISEASE
     Route: 042
     Dates: start: 20101126
  4. ATIVAN [Concomitant]
     Route: 065

REACTIONS (3)
  - ABDOMINAL PAIN LOWER [None]
  - DIARRHOEA [None]
  - ULCER [None]
